FAERS Safety Report 25476135 (Version 1)
Quarter: 2025Q2

REPORT INFORMATION
  Report Type: Spontaneous
  Country: GB (occurrence: GB)
  Receive Date: 20250625
  Receipt Date: 20250625
  Transmission Date: 20250717
  Serious: Yes (Other)
  Sender: STRIDES
  Company Number: GB-STRIDES ARCOLAB LIMITED-2025SP007482

PATIENT
  Age: 34 Year
  Sex: Male

DRUGS (19)
  1. OLANZAPINE [Suspect]
     Active Substance: OLANZAPINE
     Indication: Schizophrenia
     Route: 065
     Dates: start: 2022
  2. OLANZAPINE [Suspect]
     Active Substance: OLANZAPINE
     Route: 065
     Dates: start: 2023
  3. OLANZAPINE [Suspect]
     Active Substance: OLANZAPINE
     Route: 065
     Dates: start: 2023
  4. OLANZAPINE [Suspect]
     Active Substance: OLANZAPINE
     Route: 065
  5. HALOPERIDOL [Suspect]
     Active Substance: HALOPERIDOL
     Indication: Schizophrenia
     Route: 065
     Dates: start: 2022
  6. RISPERIDONE [Suspect]
     Active Substance: RISPERIDONE
     Indication: Schizophrenia
     Route: 065
     Dates: start: 2022
  7. AMISULPRIDE [Suspect]
     Active Substance: AMISULPRIDE
     Indication: Schizophrenia
     Route: 065
  8. AMISULPRIDE [Suspect]
     Active Substance: AMISULPRIDE
     Route: 065
     Dates: start: 2023
  9. AMISULPRIDE [Suspect]
     Active Substance: AMISULPRIDE
     Route: 065
  10. LURASIDONE [Suspect]
     Active Substance: LURASIDONE
     Indication: Schizophrenia
     Route: 065
     Dates: start: 2023
  11. CLOZAPINE [Concomitant]
     Active Substance: CLOZAPINE
     Indication: Schizophrenia
     Route: 065
     Dates: start: 201304, end: 202202
  12. CLOZAPINE [Concomitant]
     Active Substance: CLOZAPINE
     Route: 065
     Dates: start: 2022, end: 202206
  13. CLOZAPINE [Concomitant]
     Active Substance: CLOZAPINE
     Route: 065
     Dates: start: 202212, end: 2023
  14. CLOZAPINE [Concomitant]
     Active Substance: CLOZAPINE
     Route: 065
     Dates: start: 202303, end: 202304
  15. LITHIUM [Concomitant]
     Active Substance: LITHIUM
     Indication: Schizophrenia
     Route: 065
     Dates: start: 202211
  16. LITHIUM [Concomitant]
     Active Substance: LITHIUM
     Indication: Aggression
     Route: 065
     Dates: start: 202212
  17. LITHIUM [Concomitant]
     Active Substance: LITHIUM
     Route: 065
     Dates: start: 2023
  18. LITHIUM [Concomitant]
     Active Substance: LITHIUM
     Route: 065
  19. LENOGRASTIM [Concomitant]
     Active Substance: LENOGRASTIM
     Indication: Neutropenia
     Route: 065
     Dates: start: 202304

REACTIONS (2)
  - Mental impairment [Recovering/Resolving]
  - Drug ineffective [Unknown]
